FAERS Safety Report 5298187-4 (Version None)
Quarter: 2007Q1

REPORT INFORMATION
  Report Type: 
  Country: None (occurrence: None)
  Receive Date: 20070205
  Receipt Date: 20060123
  Transmission Date: 20070707
  Serious: Yes (Hospitalization)
  Sender: FDA-Public Use
  Company Number: US200601000944

PATIENT
  Age: 79 Year
  Sex: Female
  Weight: 62.1 kg

DRUGS (1)
  1. EVISTA [Suspect]
     Dosage: ORAL
     Route: 048
     Dates: end: 20051208

REACTIONS (1)
  - DEEP VEIN THROMBOSIS [None]
